FAERS Safety Report 16842682 (Version 1)
Quarter: 2019Q3

REPORT INFORMATION
  Report Type: Report from Study
  Country: US (occurrence: US)
  Receive Date: 20190924
  Receipt Date: 20190924
  Transmission Date: 20191005
  Serious: Yes (Other)
  Sender: FDA-Public Use
  Company Number: US-ROCHE-2411311

PATIENT

DRUGS (3)
  1. CAPECITABINE. [Suspect]
     Active Substance: CAPECITABINE
     Route: 048
  2. TRIMETREXATE [Suspect]
     Active Substance: TRIMETREXATE
     Indication: COLORECTAL CANCER
     Dosage: DOSE: 110 MG/M2 INTRAVENOUSLY OVER 60 MINUTES WEEKLY ON DAYS 1, 8, 15, 22, 29, AND 36 (6 WEEKS) FOLL
     Route: 042
  3. CAPECITABINE. [Suspect]
     Active Substance: CAPECITABINE
     Indication: COLORECTAL CANCER
     Dosage: FROM DAYS 2 THROUGH 15 AND THEN DAYS 23 THROUGH 36 FOLLOWED BY A 2-WEEK REST PERIOD
     Route: 048

REACTIONS (9)
  - Dyspnoea [Unknown]
  - Diarrhoea [Unknown]
  - Abdominal pain [Unknown]
  - Vomiting [Unknown]
  - Intestinal obstruction [Unknown]
  - Dehydration [Unknown]
  - Constipation [Unknown]
  - Palmar-plantar erythrodysaesthesia syndrome [Unknown]
  - Haematotoxicity [Unknown]
